FAERS Safety Report 4947798-1 (Version None)
Quarter: 2006Q1

REPORT INFORMATION
  Report Type: 
  Country: None (occurrence: None)
  Receive Date: 20060320
  Receipt Date: 20060215
  Transmission Date: 20060701
  Serious: Yes (Death, Life-Threatening, Other)
  Sender: FDA-Public Use
  Company Number: 2006JP000314

PATIENT
  Age: 53 Year
  Sex: Male

DRUGS (12)
  1. CEFAZOLIN [Suspect]
     Indication: PYELONEPHRITIS
     Dosage: 2G PER DAY
     Route: 042
     Dates: start: 20060123, end: 20060125
  2. KN-MG3 [Concomitant]
  3. AMICALIQ [Concomitant]
  4. SODIUM CHLORIDE [Concomitant]
  5. PIPERACILLIN [Concomitant]
     Dates: start: 20060126, end: 20060201
  6. ISOTONIC FLUID [Concomitant]
  7. MADOPAR [Concomitant]
  8. METILON [Concomitant]
  9. SYMMETREL [Concomitant]
  10. KAMAG G [Concomitant]
  11. BETAMETHASONE [Concomitant]
  12. ATROPINE [Concomitant]

REACTIONS (3)
  - DISSEMINATED INTRAVASCULAR COAGULATION [None]
  - PLATELET COUNT DECREASED [None]
  - SEPTIC SHOCK [None]
